FAERS Safety Report 8000315-4 (Version None)
Quarter: 2011Q4

REPORT INFORMATION
  Report Type: 
  Country: None (occurrence: None)
  Receive Date: 20111220
  Receipt Date: 20111220
  Transmission Date: 20120403
  Serious: Yes (Death)
  Sender: FDA-Public Use
  Company Number: None

PATIENT
  Sex: Female
  Weight: 90 kg

DRUGS (2)
  1. SEE MEDICATION SHEET [Concomitant]
  2. ORENCIA [Suspect]
     Indication: RHEUMATOID ARTHRITIS
     Dosage: 750IU 1ST INFUSION I.V.
     Route: 042
     Dates: start: 20111208

REACTIONS (8)
  - FEELING ABNORMAL [None]
  - POSTICTAL STATE [None]
  - BRADYCARDIA [None]
  - CARDIAC ARREST [None]
  - RESPIRATORY ARREST [None]
  - INFUSION RELATED REACTION [None]
  - AGITATION [None]
  - NERVOUSNESS [None]
